FAERS Safety Report 8013386-6 (Version None)
Quarter: 2011Q4

REPORT INFORMATION
  Report Type: 
  Country: None (occurrence: None)
  Receive Date: 20111229
  Receipt Date: 20111221
  Transmission Date: 20120403
  Serious: Yes (Hospitalization, Other)
  Sender: FDA-Public Use
  Company Number: US-BAYER-2011-108518

PATIENT
  Age: 29 Year
  Sex: Female
  Weight: 59.864 kg

DRUGS (2)
  1. IBUPROFEN [Concomitant]
     Indication: ABDOMINAL PAIN
     Dosage: UNK
     Route: 048
     Dates: start: 20101225
  2. MIRENA [Suspect]
     Indication: CONTRACEPTION
     Dosage: 20 MCG/24HR, CONT
     Route: 015
     Dates: start: 20100421, end: 20111102

REACTIONS (3)
  - ECTOPIC PREGNANCY [None]
  - ABDOMINAL PAIN [None]
  - PAIN [None]
